FAERS Safety Report 23885085 (Version 2)
Quarter: 2024Q3

REPORT INFORMATION
  Report Type: Spontaneous
  Country: RO (occurrence: RO)
  Receive Date: 20240522
  Receipt Date: 20240701
  Transmission Date: 20241017
  Serious: Yes (Hospitalization, Other)
  Sender: CELLTRION
  Company Number: RO-PFIZER INC-PV202400062393

PATIENT

DRUGS (2)
  1. INFLIXIMAB [Suspect]
     Active Substance: INFLIXIMAB
     Indication: Colitis ulcerative
     Dosage: 10MG/KG (BODY WEIGHT)
  2. SOLU-MEDROL [Suspect]
     Active Substance: METHYLPREDNISOLONE SODIUM SUCCINATE
     Dosage: 60 MG, DAILY (FOR 3 DAYS)
     Route: 042

REACTIONS (4)
  - Diarrhoea haemorrhagic [Unknown]
  - Hypoalbuminaemia [Unknown]
  - C-reactive protein increased [Unknown]
  - Anaemia [Unknown]
